FAERS Safety Report 4429234-7 (Version None)
Quarter: 2004Q3

REPORT INFORMATION
  Report Type: 
  Country: None (occurrence: None)
  Receive Date: 20040819
  Receipt Date: 20040813
  Transmission Date: 20050211
  Serious: Yes (Other)
  Sender: FDA-Public Use
  Company Number: CA-JNJFOC-20040804820

PATIENT
  Sex: Male
  Weight: 59.88 kg

DRUGS (5)
  1. TYLENOL W/ CODEINE NO. 3 [Suspect]
     Route: 049
  2. METROPOLOL [Concomitant]
  3. IMURAN [Concomitant]
     Indication: SYSTEMIC LUPUS ERYTHEMATOSUS
  4. TICLID [Concomitant]
  5. ZOCOR [Concomitant]

REACTIONS (1)
  - BLOOD POTASSIUM INCREASED [None]
